FAERS Safety Report 9552400 (Version 2)
Quarter: 2013Q4

REPORT INFORMATION
  Report Type: Spontaneous
  Country: JP (occurrence: JP)
  Receive Date: 20130925
  Receipt Date: 20131004
  Transmission Date: 20140711
  Serious: Yes (Other)
  Sender: FDA-Public Use
  Company Number: JP-ASTELLAS-2013JP009717

PATIENT
  Age: 77 Year
  Sex: Female

DRUGS (4)
  1. BETANIS [Suspect]
     Indication: HYPERTONIC BLADDER
     Dosage: 25 MG, UID/QD
     Route: 048
     Dates: start: 20130806
  2. DEPAS [Concomitant]
     Route: 048
  3. MERISLON [Concomitant]
     Route: 048
  4. ADETPHOS [Concomitant]
     Route: 048

REACTIONS (1)
  - Dermatitis bullous [Recovering/Resolving]
